APPROVED DRUG PRODUCT: RALOXIFENE HYDROCHLORIDE
Active Ingredient: RALOXIFENE HYDROCHLORIDE
Strength: 60MG
Dosage Form/Route: TABLET;ORAL
Application: A204310 | Product #001 | TE Code: AB
Applicant: AUROBINDO PHARMA LTD
Approved: Aug 28, 2015 | RLD: No | RS: No | Type: RX